FAERS Safety Report 4947945-1 (Version None)
Quarter: 2006Q1

REPORT INFORMATION
  Report Type: 
  Country: None (occurrence: None)
  Receive Date: 20060314
  Receipt Date: 20060301
  Transmission Date: 20060701
  Serious: Yes (Other)
  Sender: FDA-Public Use
  Company Number: AND_0286_2006

PATIENT
  Age: 67 Year
  Sex: Female

DRUGS (2)
  1. CARTIA XT [Suspect]
     Indication: HYPERTENSION
     Dosage: 180 MG QDAY PO
     Route: 048
     Dates: start: 20051201
  2. CARTIA XT [Suspect]
     Indication: HYPERTENSION
     Dosage: 240 MG QDAY PO
     Route: 048
     Dates: start: 20051001, end: 20051201

REACTIONS (6)
  - CONSTIPATION [None]
  - DIZZINESS [None]
  - DRY EYE [None]
  - DRY MOUTH [None]
  - MIGRAINE WITH AURA [None]
  - TREMOR [None]
